FAERS Safety Report 8935937 (Version 1)
Quarter: 2012Q4

REPORT INFORMATION
  Report Type: 
  Country: US (occurrence: US)
  Receive Date: 20121130
  Receipt Date: 20121130
  Transmission Date: 20130627
  Serious: No
  Sender: FDA-Public Use
  Company Number: US-BAYER-2012-124903

PATIENT
  Age: 30 Year
  Sex: Male
  Weight: 79.37 kg

DRUGS (1)
  1. ALEVE CAPLET/TABLET,MIDOL EXTENDED RELIEF CAPLET [Suspect]
     Indication: BACK ACHE
     Dosage: 1 DF, TID
     Route: 048

REACTIONS (1)
  - Hypoaesthesia [Not Recovered/Not Resolved]
